FAERS Safety Report 6832085-7 (Version None)
Quarter: 2010Q3

REPORT INFORMATION
  Report Type: 
  Country: None (occurrence: None)
  Receive Date: 20100712
  Receipt Date: 20100702
  Transmission Date: 20110219
  Serious: Yes (Death)
  Sender: FDA-Public Use
  Company Number: US-ROCHE-713745

PATIENT
  Sex: Female

DRUGS (1)
  1. XELODA [Suspect]
     Indication: PRODUCT USED FOR UNKNOWN INDICATION
     Dosage: HER LAST REFILL WAS IN NOVEMBER 2009 AND THE PHARMACIST DID NOT KNOW THE THERAPY STATUS AFTER THAT.
     Route: 048
     Dates: start: 20090901

REACTIONS (1)
  - DEATH [None]
